FAERS Safety Report 7654853-4 (Version None)
Quarter: 2011Q3

REPORT INFORMATION
  Report Type: 
  Country: None (occurrence: None)
  Receive Date: 20110803
  Receipt Date: 20110803
  Transmission Date: 20111222
  Serious: Yes (Life-Threatening, Hospitalization)
  Sender: FDA-Public Use
  Company Number: None

PATIENT
  Age: 85 Year
  Sex: Male
  Weight: 80.9 kg

DRUGS (1)
  1. DILTIAZEM [Suspect]
     Indication: HYPERTENSION
     Dosage: 180 MG EVERY DAY PO
     Route: 048
     Dates: start: 20110318, end: 20110615

REACTIONS (4)
  - ATRIOVENTRICULAR BLOCK [None]
  - FATIGUE [None]
  - LETHARGY [None]
  - BRADYCARDIA [None]
